FAERS Safety Report 9720894 (Version 2)
Quarter: 2013Q4

REPORT INFORMATION
  Report Type: Report from Study
  Country: US (occurrence: US)
  Receive Date: 20131129
  Receipt Date: 20131226
  Transmission Date: 20140711
  Serious: Yes (Hospitalization, Other)
  Sender: FDA-Public Use
  Company Number: US-JNJFOC-20131115095

PATIENT
  Age: 52 Year
  Sex: Female
  Weight: 131.54 kg

DRUGS (2)
  1. INFLIXIMAB, RECOMBINANT [Suspect]
     Indication: PSORIASIS
     Route: 042
  2. STELARA [Concomitant]
     Route: 065

REACTIONS (1)
  - Carcinoid tumour pulmonary [Not Recovered/Not Resolved]
